FAERS Safety Report 9483909 (Version 3)
Quarter: 2014Q1

REPORT INFORMATION
  Report Type: Spontaneous
  Country: US (occurrence: US)
  Receive Date: 20130828
  Receipt Date: 20140128
  Transmission Date: 20141002
  Serious: Yes (Other)
  Sender: FDA-Public Use
  Company Number: CHPA2011US08198

PATIENT
  Age: 72 Year
  Sex: Female
  Weight: 90.7 kg

DRUGS (7)
  1. VOLTAREN GEL [Suspect]
     Indication: OSTEOARTHRITIS
     Dosage: UNK, A LITTLE BIT
     Route: 061
     Dates: start: 201011
  2. CELEBREX [Concomitant]
     Indication: PAIN
  3. HYDROCODONE [Concomitant]
  4. ANTIHYPERTENSIVES [Concomitant]
     Indication: HYPERTENSION
  5. ANALGESICS [Concomitant]
     Indication: PAIN
     Dosage: UNK
  6. DIURETICS [Concomitant]
     Indication: SWELLING
     Dosage: UNK
  7. SERTRALINE [Concomitant]

REACTIONS (8)
  - Herpes zoster [Not Recovered/Not Resolved]
  - Thinking abnormal [Not Recovered/Not Resolved]
  - Road traffic accident [Unknown]
  - Back pain [Not Recovered/Not Resolved]
  - Underdose [Unknown]
  - Therapeutic response unexpected [Unknown]
  - Drug administered at inappropriate site [Unknown]
  - Drug ineffective [Unknown]
